FAERS Safety Report 5214511-2 (Version None)
Quarter: 2007Q1

REPORT INFORMATION
  Report Type: 
  Country: None (occurrence: None)
  Receive Date: 20070116
  Receipt Date: 20070108
  Transmission Date: 20070707
  Serious: Yes (Hospitalization)
  Sender: FDA-Public Use
  Company Number: DEWYE072609JAN07

PATIENT
  Age: 35 Year
  Sex: Male

DRUGS (4)
  1. VENLAFAXINE HCL [Suspect]
     Dosage: OVERDOSE AMOUNT, ORAL
     Route: 048
     Dates: start: 20070108, end: 20070108
  2. ABILIFY [Suspect]
     Dosage: ORAL
     Route: 048
     Dates: start: 20070108, end: 20070108
  3. CITALOPRAM HYDROBROMIDE [Suspect]
     Dosage: ORAL
     Route: 048
     Dates: start: 20070108, end: 20070108
  4. ZYPREXA [Suspect]
     Dosage: ORAL
     Route: 048
     Dates: start: 20070108, end: 20070108

REACTIONS (6)
  - AGITATION [None]
  - BOWEL SOUNDS ABNORMAL [None]
  - INTENTIONAL OVERDOSE [None]
  - MIOSIS [None]
  - SUICIDE ATTEMPT [None]
  - TACHYCARDIA [None]
